FAERS Safety Report 11088910 (Version 3)
Quarter: 2018Q3

REPORT INFORMATION
  Report Type: Spontaneous
  Country: US (occurrence: US)
  Receive Date: 20150504
  Receipt Date: 20180709
  Transmission Date: 20181010
  Serious: Yes (Other)
  Sender: FDA-Public Use
  Company Number: US-BIOMARINAP-US-2014-104979

PATIENT
  Sex: Male

DRUGS (1)
  1. ALDURAZYME [Suspect]
     Active Substance: LARONIDASE
     Indication: MUCOPOLYSACCHARIDOSIS I
     Dosage: UNK
     Route: 041
     Dates: start: 20150109

REACTIONS (7)
  - Mobility decreased [Unknown]
  - Tendon disorder [Unknown]
  - Tooth extraction [Recovering/Resolving]
  - Drug administration error [Unknown]
  - Surgery [Unknown]
  - Carpal tunnel syndrome [Unknown]
  - Back disorder [Unknown]
